FAERS Safety Report 21540264 (Version 1)
Quarter: 2022Q4

REPORT INFORMATION
  Report Type: Spontaneous
  Country: RU (occurrence: None)
  Receive Date: 20221102
  Receipt Date: 20221102
  Transmission Date: 20230112
  Serious: Yes (Other)
  Sender: FDA-Public Use
  Company Number: RU-ROCHE-3209415

PATIENT
  Age: 61 Year
  Sex: Female

DRUGS (1)
  1. ALECTINIB [Suspect]
     Active Substance: ALECTINIB
     Indication: Lung adenocarcinoma
     Route: 065

REACTIONS (9)
  - Thrombocytopenia [Unknown]
  - Anaemia [Unknown]
  - Asthenia [Unknown]
  - Taste disorder [Unknown]
  - Visual impairment [Unknown]
  - Nausea [Unknown]
  - Rash [Unknown]
  - Myalgia [Unknown]
  - Diarrhoea [Unknown]

NARRATIVE: CASE EVENT DATE: 20201101
